FAERS Safety Report 8020320-1 (Version None)
Quarter: 2012Q1

REPORT INFORMATION
  Report Type: 
  Country: None (occurrence: None)
  Receive Date: 20120103
  Receipt Date: 20111228
  Transmission Date: 20120608
  Serious: Yes (Death, Hospitalization)
  Sender: FDA-Public Use
  Company Number: US-JNJCH-2008001002

PATIENT
  Age: 52 Year
  Sex: Male

DRUGS (10)
  1. WARFARIN SODIUM [Suspect]
     Indication: SUICIDE ATTEMPT
     Dosage: UNSPECIFIED
     Route: 048
     Dates: start: 20060101, end: 20060101
  2. IBUPROFEN [Suspect]
     Dosage: UNSPECIFIED
     Route: 048
     Dates: start: 20060101, end: 20060101
  3. ACETAMINOPHEN [Suspect]
     Indication: SUICIDE ATTEMPT
     Dosage: UNK
     Route: 048
     Dates: start: 20060101, end: 20060101
  4. CARVEDILOL [Suspect]
     Indication: SUICIDE ATTEMPT
     Dosage: UNSPECIFIED
     Route: 048
     Dates: start: 20060101, end: 20060101
  5. OXAZEPAM [Suspect]
     Indication: SUICIDE ATTEMPT
     Dosage: UNSPECIFIED
     Route: 048
     Dates: start: 20060101, end: 20060101
  6. DIURETICS [Suspect]
     Indication: SUICIDE ATTEMPT
     Dosage: UNSPECIFIED
     Route: 048
  7. ANALGESIC COMB [Suspect]
     Indication: SUICIDE ATTEMPT
     Dosage: UNSPECIFIED
     Route: 048
  8. PROPAFENONE HCL [Suspect]
     Indication: SUICIDE ATTEMPT
     Dosage: UNSPECIFIED
     Route: 048
     Dates: start: 20060101, end: 20060101
  9. CARDIAC GLYCOSIDES [Suspect]
     Indication: SUICIDE ATTEMPT
     Dosage: UNSPECIFIED
     Route: 048
  10. TEMAZEPAM [Suspect]
     Indication: SUICIDE ATTEMPT
     Dosage: UNSPECIFIED
     Route: 048
     Dates: start: 20060101, end: 20060101

REACTIONS (2)
  - INTENTIONAL OVERDOSE [None]
  - TOXICITY TO VARIOUS AGENTS [None]
